FAERS Safety Report 7328974-X (Version None)
Quarter: 2011Q1

REPORT INFORMATION
  Report Type: 
  Country: None (occurrence: None)
  Receive Date: 20110303
  Receipt Date: 20110224
  Transmission Date: 20110831
  Serious: Yes (Death, Hospitalization, Other)
  Sender: FDA-Public Use
  Company Number: IL-SANOFI-AVENTIS-2011SA011977

PATIENT
  Sex: Male

DRUGS (1)
  1. INSULIN GLARGINE [Suspect]
     Indication: DIABETES MELLITUS
     Route: 058

REACTIONS (6)
  - FACE OEDEMA [None]
  - SCROTAL OEDEMA [None]
  - BLOOD GLUCOSE DECREASED [None]
  - RENAL FAILURE [None]
  - CARDIAC FAILURE [None]
  - OXYGEN SATURATION DECREASED [None]
